FAERS Safety Report 4864472-0 (Version None)
Quarter: 2005Q4

REPORT INFORMATION
  Report Type: 
  Country: None (occurrence: None)
  Receive Date: 20051222
  Receipt Date: 20051215
  Transmission Date: 20060501
  Serious: Yes (Hospitalization)
  Sender: FDA-Public Use
  Company Number: CZ-ABBOTT-05P-217-0320141-00

PATIENT
  Sex: Male

DRUGS (1)
  1. KLACID SUSPENSION [Suspect]
     Indication: EPIDIDYMITIS
     Dosage: 2 DOSES
     Route: 048
     Dates: start: 20051211, end: 20051211

REACTIONS (2)
  - ANGIONEUROTIC OEDEMA [None]
  - RASH MACULO-PAPULAR [None]
